FAERS Safety Report 5600101-6 (Version None)
Quarter: 2008Q1

REPORT INFORMATION
  Report Type: 
  Country: None (occurrence: None)
  Receive Date: 20080123
  Receipt Date: 20080117
  Transmission Date: 20080703
  Serious: Yes (Other)
  Sender: FDA-Public Use
  Company Number: A0704935A

PATIENT
  Sex: Male

DRUGS (3)
  1. WELLBUTRIN [Suspect]
     Indication: DRUG USE FOR UNKNOWN INDICATION
     Route: 065
     Dates: end: 20050919
  2. PAXIL [Suspect]
     Indication: SELF-MEDICATION
     Route: 065
  3. SEROQUEL [Concomitant]

REACTIONS (13)
  - ANXIETY [None]
  - DECREASED APPETITE [None]
  - DECREASED INTEREST [None]
  - DELUSION [None]
  - DEPRESSED MOOD [None]
  - EATING DISORDER [None]
  - FATIGUE [None]
  - HALLUCINATION, AUDITORY [None]
  - IMPAIRED SELF-CARE [None]
  - INSOMNIA [None]
  - MAJOR DEPRESSION [None]
  - PSYCHOTIC DISORDER [None]
  - SLEEP DISORDER [None]
